FAERS Safety Report 9097273 (Version 2)
Quarter: 2013Q1

REPORT INFORMATION
  Report Type: Spontaneous
  Country: US (occurrence: US)
  Receive Date: 20130212
  Receipt Date: 20130218
  Transmission Date: 20140127
  Serious: Yes (Other)
  Sender: FDA-Public Use
  Company Number: US-RB-049584-13

PATIENT
  Age: 76 Year
  Sex: Male

DRUGS (4)
  1. MUCINEX FAST MAX ADULT COLD FLU THROAT (ACETAMINOPHEN) [Suspect]
     Indication: PRODUCT USED FOR UNKNOWN INDICATION
     Dosage: 31-JAN-2013 TWO CAPLETS/ FOUR HOURS.PATIENT TOOK A TOTAL OF 4 PILLS
     Route: 048
     Dates: start: 20130131
  2. MUCINEX FAST MAX ADULT COLD FLU THROAT (ACETAMINOPHEN) [Suspect]
  3. MUCINEX FAST MAX ADULT COLD FLU THROAT (ACETAMINOPHEN) [Suspect]
  4. MUCINEX FAST MAX ADULT COLD FLU THROAT (ACETAMINOPHEN) [Suspect]

REACTIONS (1)
  - Hallucination [Recovered/Resolved]
